FAERS Safety Report 8688117 (Version 2)
Quarter: 2013Q4

REPORT INFORMATION
  Report Type: Spontaneous
  Country: US (occurrence: US)
  Receive Date: 20120727
  Receipt Date: 20131101
  Transmission Date: 20140711
  Serious: No
  Sender: FDA-Public Use
  Company Number: US-009507513-1207USA002843

PATIENT
  Age: 75 Year
  Sex: Female

DRUGS (1)
  1. TICE BCG LIVE [Suspect]
     Dosage: UNK
     Dates: start: 20120705

REACTIONS (2)
  - Device malfunction [Unknown]
  - No adverse event [Unknown]
